FAERS Safety Report 11367427 (Version 1)
Quarter: 2015Q3

REPORT INFORMATION
  Report Type: Spontaneous
  Country: US (occurrence: US)
  Receive Date: 20150811
  Receipt Date: 20150811
  Transmission Date: 20151125
  Serious: No
  Sender: FDA-Public Use
  Company Number: US-ELI_LILLY_AND_COMPANY-US201202001984

PATIENT
  Sex: Male
  Weight: 99 kg

DRUGS (1)
  1. AXIRON [Suspect]
     Active Substance: TESTOSTERONE
     Indication: BLOOD TESTOSTERONE DECREASED
     Dosage: 30 MG, QD
     Route: 061

REACTIONS (5)
  - Application site pain [Recovered/Resolved]
  - Influenza like illness [Unknown]
  - Skin odour abnormal [Recovered/Resolved]
  - Wrong technique in product usage process [Recovered/Resolved]
  - Parosmia [Recovered/Resolved]
